FAERS Safety Report 19493171 (Version 3)
Quarter: 2022Q2

REPORT INFORMATION
  Report Type: Report from Study
  Country: NL (occurrence: NL)
  Receive Date: 20210705
  Receipt Date: 20220524
  Transmission Date: 20220720
  Serious: Yes (Other)
  Sender: FDA-Public Use
  Company Number: NL-ABBVIE-21K-114-3972403-00

PATIENT
  Age: 75 Year
  Sex: Female

DRUGS (7)
  1. CARBIDOPA\LEVODOPA [Suspect]
     Active Substance: CARBIDOPA\LEVODOPA
     Indication: Parkinson^s disease
     Route: 050
     Dates: start: 20200309
  2. CARBIDOPA\LEVODOPA [Suspect]
     Active Substance: CARBIDOPA\LEVODOPA
     Dosage: MD: 8.0ML, CD: 3.6ML/H, ED: 2.0ML, CND: 2.9ML/H, END: 1.0ML
     Route: 050
  3. CARBIDOPA\LEVODOPA [Suspect]
     Active Substance: CARBIDOPA\LEVODOPA
     Dosage: MD: 7.7ML, CD: 3.9ML/H, ED: 2.0ML, CND: 2.9ML/H, END: 1.0ML
     Route: 050
  4. CARBIDOPA\LEVODOPA [Suspect]
     Active Substance: CARBIDOPA\LEVODOPA
     Dosage: MD: 7.7ML, CD: 4.0ML/H, ED: 2.1ML, CND: 3.3ML/H, END: 1.6ML
     Route: 050
  5. SINEMET [Concomitant]
     Active Substance: CARBIDOPA\LEVODOPA
     Indication: Parkinson^s disease
     Route: 048
     Dates: start: 200403, end: 20200309
  6. HERBALS [Concomitant]
     Active Substance: HERBALS
     Indication: Parkinson^s disease
     Dosage: 1 SCOOP
     Route: 048
     Dates: start: 201503, end: 20200309
  7. VITAMIN D [Concomitant]
     Active Substance: VITAMIN D NOS
     Indication: Vitamin D
     Route: 048
     Dates: start: 201903

REACTIONS (20)
  - Hip surgery [Recovered/Resolved]
  - Delirium [Recovered/Resolved]
  - Extra dose administered [Recovered/Resolved]
  - Fatigue [Not Recovered/Not Resolved]
  - Anaemia [Not Recovered/Not Resolved]
  - Hypotension [Not Recovered/Not Resolved]
  - Stoma site erythema [Unknown]
  - On and off phenomenon [Unknown]
  - Frequent bowel movements [Unknown]
  - Bradykinesia [Not Recovered/Not Resolved]
  - Weight increased [Recovered/Resolved]
  - Poor quality sleep [Not Recovered/Not Resolved]
  - Tremor [Not Recovered/Not Resolved]
  - Mobility decreased [Not Recovered/Not Resolved]
  - Gait disturbance [Not Recovered/Not Resolved]
  - Device connection issue [Unknown]
  - Cognitive disorder [Not Recovered/Not Resolved]
  - Stoma site pain [Not Recovered/Not Resolved]
  - Inappropriate schedule of product administration [Not Recovered/Not Resolved]
  - Dyschezia [Not Recovered/Not Resolved]

NARRATIVE: CASE EVENT DATE: 20210101
